FAERS Safety Report 9487361 (Version 2)
Quarter: 2013Q3

REPORT INFORMATION
  Report Type: Spontaneous
  Country: CA (occurrence: CA)
  Receive Date: 20130829
  Receipt Date: 20130920
  Transmission Date: 20140515
  Serious: Yes (Other)
  Sender: FDA-Public Use
  Company Number: CA-BAXTER-2013BAX033182

PATIENT
  Age: 63 Year
  Sex: Female

DRUGS (2)
  1. 5% DEXTROSE INJECTION [Suspect]
     Indication: PRODUCT USED FOR UNKNOWN INDICATION
     Dates: start: 20130807
  2. FLUOROURACIL [Suspect]
     Indication: PRODUCT USED FOR UNKNOWN INDICATION
     Route: 065
     Dates: start: 20130807

REACTIONS (12)
  - Neuropathy peripheral [Recovered/Resolved with Sequelae]
  - Device malfunction [Recovered/Resolved with Sequelae]
  - Dizziness [Recovered/Resolved with Sequelae]
  - Feeling hot [Unknown]
  - Hyperhidrosis [Unknown]
  - Nausea [Unknown]
  - Dysphagia [Unknown]
  - Poor quality sleep [Unknown]
  - Malaise [Unknown]
  - Erythema [Unknown]
  - Fatigue [Unknown]
  - Feeling abnormal [Unknown]
